FAERS Safety Report 6617390-1 (Version None)
Quarter: 2010Q1

REPORT INFORMATION
  Report Type: 
  Country: None (occurrence: None)
  Receive Date: 20100307
  Receipt Date: 20100224
  Transmission Date: 20100710
  Serious: Yes (Death, Hospitalization)
  Sender: FDA-Public Use
  Company Number: IT-BAYER-201017092GPV

PATIENT
  Age: 88 Year
  Sex: Female

DRUGS (8)
  1. ASPIRIN [Suspect]
     Indication: PROPHYLAXIS
     Dosage: TOTAL DAILY DOSE: 100 MG  UNIT DOSE: 100 MG
     Route: 048
     Dates: start: 20091101, end: 20100123
  2. CLOPIDOGREL [Suspect]
     Indication: PROPHYLAXIS
     Route: 048
     Dates: start: 20091101, end: 20100123
  3. ALLOPURINOL [Concomitant]
     Route: 048
     Dates: start: 20091101, end: 20100123
  4. DILTIAZEM HCL [Concomitant]
     Indication: ISCHAEMIC CARDIOMYOPATHY
     Route: 048
     Dates: start: 20091101, end: 20100123
  5. LASIX [Concomitant]
     Indication: ISCHAEMIC CARDIOMYOPATHY
     Route: 048
     Dates: start: 20091101, end: 20100123
  6. RANITIDINE [Concomitant]
     Indication: PROPHYLAXIS
     Route: 048
     Dates: start: 20091101, end: 20100123
  7. NITRODERM [Concomitant]
     Indication: ISCHAEMIC CARDIOMYOPATHY
     Dosage: TOTAL DAILY DOSE: 10 MG
     Route: 062
     Dates: start: 20091101, end: 20100123
  8. SPIRIVA [Concomitant]
     Route: 055

REACTIONS (7)
  - ACUTE RESPIRATORY FAILURE [None]
  - ANAEMIA [None]
  - ANURIA [None]
  - COMA [None]
  - DIARRHOEA [None]
  - RECTAL HAEMORRHAGE [None]
  - VOMITING [None]
